FAERS Safety Report 5273787-6 (Version None)
Quarter: 2007Q1

REPORT INFORMATION
  Report Type: 
  Country: None (occurrence: None)
  Receive Date: 20070321
  Receipt Date: 20070321
  Transmission Date: 20070707
  Serious: Yes (Other)
  Sender: FDA-Public Use
  Company Number: None

PATIENT
  Age: 90 Year
  Sex: Male

DRUGS (1)
  1. EFFEXOR XR [Suspect]
     Indication: DEPRESSION
     Dosage: 1 CAPSULE   QDAY  PO
     Route: 048
     Dates: start: 20061215, end: 20070111

REACTIONS (1)
  - IDIOPATHIC THROMBOCYTOPENIC PURPURA [None]
